FAERS Safety Report 8322710-6 (Version None)
Quarter: 2012Q2

REPORT INFORMATION
  Report Type: 
  Country: None (occurrence: None)
  Receive Date: 20120430
  Receipt Date: 20120420
  Transmission Date: 20120825
  Serious: Yes (Hospitalization)
  Sender: FDA-Public Use
  Company Number: DE-ABBOTT-12P-062-0928563-00

PATIENT
  Age: 42 Year
  Sex: Male

DRUGS (4)
  1. MELPERONE [Concomitant]
     Indication: PRODUCT USED FOR UNKNOWN INDICATION
  2. OXAZEPAM [Concomitant]
     Indication: PRODUCT USED FOR UNKNOWN INDICATION
  3. VALPROATE SODIUM [Suspect]
     Indication: EPILEPSY
     Route: 065
     Dates: start: 20080101, end: 20120101
  4. SODIUM CHLORIDE [Concomitant]
     Indication: PRODUCT USED FOR UNKNOWN INDICATION

REACTIONS (3)
  - THROMBOCYTOPENIA [None]
  - LEUKOPENIA [None]
  - DRUG LEVEL INCREASED [None]
